FAERS Safety Report 9161951 (Version 5)
Quarter: 2013Q2

REPORT INFORMATION
  Report Type: Spontaneous
  Country: US (occurrence: None)
  Receive Date: 20130225
  Receipt Date: 20130509
  Transmission Date: 20140414
  Serious: Yes (Hospitalization)
  Sender: FDA-Public Use
  Company Number: 145522

PATIENT
  Age: 62 Year
  Sex: Female
  Weight: 53 kg

DRUGS (1)
  1. LEUCOVORIN CALCIUM [Suspect]
     Indication: COLON CANCER
     Dosage: CONTINUOUS INFUSION
     Dates: start: 20121107, end: 20130118

REACTIONS (3)
  - Aortic dissection [None]
  - Neutrophil count decreased [None]
  - Back pain [None]
